FAERS Safety Report 8348206-3 (Version None)
Quarter: 2012Q2

REPORT INFORMATION
  Report Type: 
  Country: None (occurrence: None)
  Receive Date: 20120509
  Receipt Date: 20120426
  Transmission Date: 20120825
  Serious: Yes (Hospitalization)
  Sender: FDA-Public Use
  Company Number: JP-MYLANLABS-2012S1008720

PATIENT
  Age: 67 Year
  Sex: Male

DRUGS (7)
  1. METILON [Concomitant]
     Indication: PYREXIA
     Route: 042
     Dates: start: 20120317
  2. GLYCYRON /00466401/ [Concomitant]
     Indication: HEPATIC NEOPLASM MALIGNANT
     Route: 048
     Dates: start: 20091218
  3. ZOLPIDEM [Concomitant]
     Indication: INSOMNIA
     Dates: start: 20120303
  4. TSU-68 [Suspect]
     Indication: HEPATIC NEOPLASM MALIGNANT
     Route: 048
     Dates: start: 20120316, end: 20120319
  5. RABEPRAZOLE SODIUM [Concomitant]
     Indication: GASTROOESOPHAGEAL REFLUX DISEASE
     Dates: start: 20091224
  6. URSODIOL [Concomitant]
     Indication: HEPATIC NEOPLASM MALIGNANT
     Dates: start: 20091218
  7. EPIRUBICIN [Suspect]
     Indication: HEPATIC NEOPLASM MALIGNANT
     Route: 042
     Dates: start: 20120306

REACTIONS (1)
  - LIVER ABSCESS [None]
